FAERS Safety Report 13284778 (Version 1)
Quarter: 2017Q1

REPORT INFORMATION
  Report Type: Spontaneous
  Country: US (occurrence: US)
  Receive Date: 20170301
  Receipt Date: 20170301
  Transmission Date: 20170428
  Serious: Yes (Other)
  Sender: FDA-Public Use
  Company Number: US-BRISTOL-MYERS SQUIBB COMPANY-BMS-2017-015896

PATIENT
  Sex: Male
  Weight: 88.45 kg

DRUGS (1)
  1. YERVOY [Suspect]
     Active Substance: IPILIMUMAB
     Indication: MALIGNANT MELANOMA
     Route: 042

REACTIONS (4)
  - Paralysis [Unknown]
  - Vertigo [Not Recovered/Not Resolved]
  - Neuropathy peripheral [Unknown]
  - Dizziness [Unknown]
